FAERS Safety Report 8475559-8 (Version None)
Quarter: 2012Q2

REPORT INFORMATION
  Report Type: 
  Country: None (occurrence: None)
  Receive Date: 20120628
  Receipt Date: 20120615
  Transmission Date: 20120825
  Serious: Yes (Other)
  Sender: FDA-Public Use
  Company Number: JP-ROCHE-1061400

PATIENT
  Sex: Female
  Weight: 63.2 kg

DRUGS (2)
  1. DOCETAXEL [Suspect]
     Indication: BREAST CANCER METASTATIC
     Dosage: LAST DOSE PRIOT TO SAE: 29/MAR/2012. DOSE LAST TAKEN AS: 75 MG
     Route: 042
     Dates: start: 20120105
  2. HERCEPTIN [Suspect]
     Indication: BREAST CANCER METASTATIC
     Dosage: ON CYCLE 1
     Route: 042
     Dates: start: 20120105

REACTIONS (2)
  - BILE DUCT STONE [None]
  - CHOLANGITIS [None]
